FAERS Safety Report 12206404 (Version 2)
Quarter: 2016Q2

REPORT INFORMATION
  Report Type: Report from Study
  Country: US (occurrence: US)
  Receive Date: 20160324
  Receipt Date: 20160413
  Transmission Date: 20160815
  Serious: Yes (Hospitalization)
  Sender: FDA-Public Use
  Company Number: US-BEH-2016060343

PATIENT
  Sex: Male
  Weight: 74 kg

DRUGS (19)
  1. DELZICOL [Concomitant]
     Active Substance: MESALAMINE
  2. LOSARTAN. [Concomitant]
     Active Substance: LOSARTAN
  3. SODIUM CHLORIDE. [Concomitant]
     Active Substance: SODIUM CHLORIDE
  4. LMX [Concomitant]
     Active Substance: LIDOCAINE
  5. WELLBUTRIN [Concomitant]
     Active Substance: BUPROPION HYDROCHLORIDE
  6. ZEMAIRA [Suspect]
     Active Substance: .ALPHA.1-PROTEINASE INHIBITOR HUMAN
     Dosage: 920 MG/VL
     Route: 042
  7. DIPHENHYDRAMINE. [Concomitant]
     Active Substance: DIPHENHYDRAMINE
  8. PREDNISONE. [Concomitant]
     Active Substance: PREDNISONE
  9. DALIRESP [Concomitant]
     Active Substance: ROFLUMILAST
  10. FLOMAX [Concomitant]
     Active Substance: TAMSULOSIN HYDROCHLORIDE
  11. ZEMAIRA [Suspect]
     Active Substance: .ALPHA.1-PROTEINASE INHIBITOR HUMAN
     Indication: EMPHYSEMA
     Dosage: 961 MG/VL
     Route: 042
  12. SYMBICORT [Concomitant]
     Active Substance: BUDESONIDE\FORMOTEROL FUMARATE DIHYDRATE
  13. EPIPEN [Concomitant]
     Active Substance: EPINEPHRINE
  14. PROTONIX [Concomitant]
     Active Substance: PANTOPRAZOLE SODIUM
  15. ALBUTEROL. [Concomitant]
     Active Substance: ALBUTEROL
  16. ZEMAIRA [Suspect]
     Active Substance: .ALPHA.1-PROTEINASE INHIBITOR HUMAN
     Indication: ALPHA-1 ANTI-TRYPSIN DEFICIENCY
     Route: 042
  17. DOXYCYCLINE. [Concomitant]
     Active Substance: DOXYCYCLINE
  18. KLONOPIN [Concomitant]
     Active Substance: CLONAZEPAM
  19. MERCAPTOPURINE. [Concomitant]
     Active Substance: MERCAPTOPURINE

REACTIONS (2)
  - Pneumonia [Recovered/Resolved]
  - Influenza [Recovered/Resolved]
